FAERS Safety Report 6258917-1 (Version None)
Quarter: 2009Q3

REPORT INFORMATION
  Report Type: 
  Country: None (occurrence: None)
  Receive Date: 20090707
  Receipt Date: 20090701
  Transmission Date: 20100115
  Serious: Yes (Hospitalization, Other)
  Sender: FDA-Public Use
  Company Number: DE-ALLERGAN-0909283US

PATIENT
  Age: 70 Year
  Sex: Female

DRUGS (1)
  1. LUMIGAN [Suspect]
     Indication: GLAUCOMA
     Route: 047
     Dates: start: 20080101, end: 20090301

REACTIONS (3)
  - HYPERTENSION [None]
  - RESPIRATORY DISORDER [None]
  - TACHYCARDIA [None]
